FAERS Safety Report 25545698 (Version 2)
Quarter: 2025Q3

REPORT INFORMATION
  Report Type: Spontaneous
  Country: CN (occurrence: CN)
  Receive Date: 20250712
  Receipt Date: 20250810
  Transmission Date: 20251021
  Serious: Yes (Other)
  Sender: ALEXION PHARMACEUTICALS
  Company Number: CN-ASTRAZENECA-202507CHN004523CN

PATIENT
  Age: 72 Year
  Sex: Female
  Weight: 65.5 kg

DRUGS (1)
  1. BRILINTA [Suspect]
     Active Substance: TICAGRELOR
     Indication: Arteriosclerosis coronary artery
     Dosage: 90 MILLIGRAM, BID
     Dates: start: 20250701, end: 20250701

REACTIONS (3)
  - Dyspnoea [Recovering/Resolving]
  - Respiration abnormal [Recovering/Resolving]
  - Chest discomfort [Recovering/Resolving]

NARRATIVE: CASE EVENT DATE: 20250702
